FAERS Safety Report 7548392-9 (Version None)
Quarter: 2011Q2

REPORT INFORMATION
  Report Type: 
  Country: None (occurrence: None)
  Receive Date: 20110615
  Receipt Date: 20110607
  Transmission Date: 20111010
  Serious: Yes (Other)
  Sender: FDA-Public Use
  Company Number: US-ASTELLAS-2011US002808

PATIENT
  Sex: Male

DRUGS (1)
  1. VIBATIV [Suspect]
     Indication: DECUBITUS ULCER
     Dosage: UNK
     Route: 042

REACTIONS (1)
  - MYOCARDIAL INFARCTION [None]
